FAERS Safety Report 11199696 (Version 1)
Quarter: 2015Q2

REPORT INFORMATION
  Report Type: Report from Study
  Country: US (occurrence: US)
  Receive Date: 20150618
  Receipt Date: 20150618
  Transmission Date: 20150821
  Serious: Yes (Hospitalization, Other)
  Sender: FDA-Public Use
  Company Number: US-GILEAD-2015-0159008

PATIENT
  Age: 74 Year
  Sex: Female

DRUGS (9)
  1. FORMOTEROL [Concomitant]
     Active Substance: FORMOTEROL
  2. ATENOLOL. [Concomitant]
     Active Substance: ATENOLOL
  3. NOVOLOG [Concomitant]
     Active Substance: INSULIN ASPART
  4. AMBRISENTAN [Suspect]
     Active Substance: AMBRISENTAN
     Indication: PULMONARY ARTERIAL HYPERTENSION
     Dosage: 5 MG, QD
     Route: 065
     Dates: start: 20150209
  5. OMEPRAZOLE. [Concomitant]
     Active Substance: OMEPRAZOLE
  6. ASPIRIN                            /00002701/ [Concomitant]
     Active Substance: ASPIRIN
  7. CARAFATE [Concomitant]
     Active Substance: SUCRALFATE
  8. CLOPIDOGREL [Concomitant]
     Active Substance: CLOPIDOGREL BISULFATE
  9. ADCIRCA [Concomitant]
     Active Substance: TADALAFIL

REACTIONS (2)
  - Pneumonia [Unknown]
  - Infectious colitis [Unknown]

NARRATIVE: CASE EVENT DATE: 20150607
